FAERS Safety Report 12339308 (Version 8)
Quarter: 2016Q3

REPORT INFORMATION
  Report Type: Spontaneous
  Country: JP (occurrence: JP)
  Receive Date: 20160505
  Receipt Date: 20160907
  Transmission Date: 20161109
  Serious: Yes (Other)
  Sender: FDA-Public Use
  Company Number: JP-BIOGEN-2016BI00228458

PATIENT
  Age: 1 Year
  Sex: Male
  Weight: 9.4 kg

DRUGS (5)
  1. INCREMIN [Concomitant]
     Active Substance: FERRIC PYROPHOSPHATE
     Route: 048
  2. ALPROLIX [Suspect]
     Active Substance: EFTRENONACOG ALFA
     Indication: FACTOR IX DEFICIENCY
     Route: 042
     Dates: start: 20160113
  3. ATARAX-P [Concomitant]
     Active Substance: HYDROXYZINE HYDROCHLORIDE
     Route: 065
     Dates: start: 20160421, end: 20160727
  4. SYNAGIS [Concomitant]
     Active Substance: PALIVIZUMAB
     Indication: ANTIVIRAL PROPHYLAXIS
     Route: 030
     Dates: start: 201509, end: 201603
  5. DECADRON [Concomitant]
     Active Substance: DEXAMETHASONE
     Route: 065
     Dates: start: 20160421, end: 20160629

REACTIONS (10)
  - Factor IX inhibition [Not Recovered/Not Resolved]
  - Vomiting [Recovered/Resolved]
  - Oxygen saturation decreased [Unknown]
  - Blood pressure increased [Unknown]
  - Hypersensitivity [Unknown]
  - Epistaxis [Unknown]
  - Traumatic haemorrhage [Unknown]
  - Intentional product use issue [Unknown]
  - Heart rate increased [Unknown]
  - Nausea [Recovered/Resolved]

NARRATIVE: CASE EVENT DATE: 20160325
